FAERS Safety Report 13102664 (Version 1)
Quarter: 2017Q1

REPORT INFORMATION
  Report Type: Report from Study
  Country: US (occurrence: US)
  Receive Date: 20170110
  Receipt Date: 20170110
  Transmission Date: 20170428
  Serious: Yes (Death, Hospitalization, Other)
  Sender: FDA-Public Use
  Company Number: US-009507513-1612USA011512

PATIENT
  Sex: Male

DRUGS (1)
  1. KEYTRUDA [Suspect]
     Active Substance: PEMBROLIZUMAB
     Dosage: UNK, ONCE
     Route: 042
     Dates: start: 20160811, end: 20160811

REACTIONS (2)
  - Colon cancer metastatic [Fatal]
  - Adverse event [Unknown]

NARRATIVE: CASE EVENT DATE: 2016
